FAERS Safety Report 9252720 (Version 1)
Quarter: 2013Q2

REPORT INFORMATION
  Report Type: Report from Study
  Country: CA (occurrence: CA)
  Receive Date: 20130424
  Receipt Date: 20130424
  Transmission Date: 20140414
  Serious: Yes (Hospitalization)
  Sender: FDA-Public Use
  Company Number: CA-ABBOTT-13P-028-1078559-00

PATIENT
  Age: 43 Year
  Sex: Male

DRUGS (2)
  1. HUMIRA [Suspect]
     Indication: CROHN^S DISEASE
     Route: 058
     Dates: start: 20120316
  2. HUMIRA [Suspect]
     Indication: INTESTINAL FISTULA

REACTIONS (1)
  - Intestinal mass [Not Recovered/Not Resolved]
